FAERS Safety Report 21297119 (Version 2)
Quarter: 2022Q4

REPORT INFORMATION
  Report Type: Spontaneous
  Country: CA (occurrence: CA)
  Receive Date: 20220906
  Receipt Date: 20221118
  Transmission Date: 20230113
  Serious: Yes (Other)
  Sender: FDA-Public Use
  Company Number: CA-002147023-NVSC2022CA198314

PATIENT
  Age: 4 Year
  Sex: Male

DRUGS (2)
  1. OMALIZUMAB [Suspect]
     Active Substance: OMALIZUMAB
     Indication: Chronic spontaneous urticaria
     Dosage: 150 MG, EVERY 4 WEEKS
     Route: 065
     Dates: start: 20220610
  2. OMALIZUMAB [Suspect]
     Active Substance: OMALIZUMAB
     Indication: Angioedema

REACTIONS (4)
  - Angioedema [Unknown]
  - Condition aggravated [Unknown]
  - Chronic spontaneous urticaria [Unknown]
  - Drug ineffective [Unknown]
